FAERS Safety Report 9144055 (Version 2)
Quarter: 2013Q2

REPORT INFORMATION
  Report Type: Report from Study
  Country: CA (occurrence: CA)
  Receive Date: 20130306
  Receipt Date: 20130625
  Transmission Date: 20140414
  Serious: Yes (Other)
  Sender: FDA-Public Use
  Company Number: CA-ROCHE-1197330

PATIENT
  Age: 60 Year
  Sex: Female
  Weight: 73 kg

DRUGS (6)
  1. ACTEMRA [Suspect]
     Indication: RHEUMATOID ARTHRITIS
     Route: 042
     Dates: start: 20120409
  2. ACTEMRA [Suspect]
     Dosage: LAST DOSE ON 04/FEB/2013,
     Route: 065
     Dates: start: 20121105
  3. METFORMIN [Concomitant]
  4. PREDNISONE [Concomitant]
  5. TYLENOL EXTRA STRENGTH [Concomitant]
  6. MICARDIS [Concomitant]

REACTIONS (6)
  - Drug effect decreased [Unknown]
  - Diplopia [Not Recovered/Not Resolved]
  - Vomiting [Unknown]
  - Swelling [Unknown]
  - Nausea [Unknown]
  - Diarrhoea [Unknown]
